FAERS Safety Report 21494686 (Version 12)
Quarter: 2025Q3

REPORT INFORMATION
  Report Type: Report from Study
  Country: EU (occurrence: EU)
  Receive Date: 20221021
  Receipt Date: 20250904
  Transmission Date: 20251020
  Serious: Yes (Hospitalization)
  Sender: ROCHE
  Company Number: EU-ROCHE-3181021

PATIENT
  Age: 66 Year
  Sex: Female
  Weight: 76.0 kg

DRUGS (19)
  1. ATEZOLIZUMAB [Suspect]
     Active Substance: ATEZOLIZUMAB
     Indication: Small cell lung cancer metastatic
     Dosage: ON 13/MAY/2022, RECEIVED THE MOST RECENT DOSE 1200 MG PRIOR TO AE
     Route: 042
     Dates: start: 20220513
  2. CARBOPLATIN [Suspect]
     Active Substance: CARBOPLATIN
     Indication: Small cell lung cancer metastatic
     Route: 065
     Dates: start: 20220513
  3. ETOPOSIDE [Suspect]
     Active Substance: ETOPOSIDE
     Indication: Small cell lung cancer metastatic
     Route: 042
     Dates: start: 20220513
  4. ENCORTON 10 MG [Concomitant]
     Indication: Prophylaxis
     Dates: start: 20220609
  5. IPP 40 MG [Concomitant]
     Indication: Prophylaxis
     Dates: start: 20220609
  6. POTASSIUM CHLORIDE [Concomitant]
     Active Substance: POTASSIUM CHLORIDE
     Indication: Prophylaxis
     Dates: start: 20220609
  7. DORETA 37,5 + 325 MG [Concomitant]
     Indication: Prophylaxis
     Dates: start: 20220609
  8. LOPERAMIDE [Concomitant]
     Active Substance: LOPERAMIDE
     Indication: Prophylaxis
     Dates: start: 20220609
  9. DEXAMETHASONE [Concomitant]
     Active Substance: DEXAMETHASONE
     Indication: Prophylaxis
     Dates: start: 20220523, end: 20220609
  10. OMEPRAZOLE [Concomitant]
     Active Substance: OMEPRAZOLE
     Indication: Prophylaxis
     Dates: start: 20220522, end: 20220609
  11. KETONAL 100 MG [Concomitant]
     Indication: Prophylaxis
     Dates: start: 20220522, end: 20220522
  12. CONTROLOC [Concomitant]
     Active Substance: PANTOPRAZOLE SODIUM
     Dates: start: 20220530, end: 20220609
  13. FLUCONAZOLE [Concomitant]
     Active Substance: FLUCONAZOLE
     Indication: Prophylaxis
     Dates: start: 20220522, end: 20220608
  14. MEROPENEM [Concomitant]
     Active Substance: MEROPENEM
     Indication: Prophylaxis
     Dates: start: 20220524, end: 20220605
  15. CEFUROXIME [Concomitant]
     Active Substance: CEFUROXIME
     Indication: Prophylaxis
     Dates: start: 20220523, end: 20220605
  16. LACTULOZA [Concomitant]
     Indication: Prophylaxis
     Dates: start: 20220609
  17. PERFALFAN [Concomitant]
     Dates: start: 20220523, end: 20220528
  18. ESTAZOLAN [Concomitant]
     Dates: start: 20220523, end: 20220525
  19. CYCLONAMINA [Concomitant]
     Dates: start: 20220530, end: 20220605

REACTIONS (5)
  - Neutropenia [Recovering/Resolving]
  - Thrombocytopenia [Recovering/Resolving]
  - Decreased appetite [Recovering/Resolving]
  - Dyspnoea [Recovering/Resolving]
  - Anaemia [Recovering/Resolving]

NARRATIVE: CASE EVENT DATE: 20220522
